FAERS Safety Report 7422705-0 (Version None)
Quarter: 2011Q2

REPORT INFORMATION
  Report Type: 
  Country: None (occurrence: None)
  Receive Date: 20110419
  Receipt Date: 20110407
  Transmission Date: 20111010
  Serious: Yes (Other)
  Sender: FDA-Public Use
  Company Number: AU-CEPHALON-2010001762

PATIENT
  Sex: Female
  Weight: 68 kg

DRUGS (1)
  1. MODAVIGIL [Suspect]
     Indication: SLEEP DISORDER
     Route: 048
     Dates: start: 20080219, end: 20091013

REACTIONS (1)
  - LEUKOCYTOCLASTIC VASCULITIS [None]
